FAERS Safety Report 5150424-2 (Version None)
Quarter: 2006Q4

REPORT INFORMATION
  Report Type: 
  Country: None (occurrence: None)
  Receive Date: 20061114
  Receipt Date: 20060203
  Transmission Date: 20070319
  Serious: Yes (Hospitalization)
  Sender: FDA-Public Use
  Company Number: HQWYE648803FEB06

PATIENT
  Sex: Female

DRUGS (16)
  1. ENBREL [Suspect]
     Indication: RHEUMATOID ARTHRITIS
     Route: 058
     Dates: start: 20050621, end: 20050712
  2. ENBREL [Suspect]
     Route: 058
     Dates: start: 20050701, end: 20051107
  3. ENBREL [Suspect]
     Route: 065
     Dates: start: 20051118
  4. BREDININ [Concomitant]
     Indication: RHEUMATOID ARTHRITIS
     Route: 048
     Dates: start: 20031127, end: 20051011
  5. PREDONINE [Concomitant]
     Indication: RHEUMATOID ARTHRITIS
     Dosage: UNKNOWN
     Dates: start: 19970101
  6. PREDNISOLONE [Concomitant]
     Indication: RHEUMATOID ARTHRITIS
     Dosage: UNKNOWN
     Dates: start: 20050705, end: 20050801
  7. FLUCAM [Concomitant]
     Indication: RHEUMATOID ARTHRITIS
     Route: 048
     Dates: start: 20020228
  8. SULFASALAZINE [Concomitant]
  9. ALFAROL [Concomitant]
     Route: 048
  10. SELBEX [Concomitant]
     Indication: PROPHYLAXIS
     Route: 048
     Dates: start: 20020228
  11. BONALON [Concomitant]
     Route: 048
     Dates: start: 20040812
  12. LEVOFLOXACIN [Concomitant]
  13. MUCODYNE [Concomitant]
     Route: 065
  14. KETOPROFEN [Concomitant]
     Indication: RHEUMATOID ARTHRITIS
     Route: 065
  15. METALCAPTASE [Concomitant]
     Indication: RHEUMATOID ARTHRITIS
     Route: 048
     Dates: start: 20040812, end: 20060522
  16. PYDOXAL [Concomitant]
     Route: 048
     Dates: start: 20040812, end: 20060522

REACTIONS (3)
  - PHARYNGOLARYNGEAL PAIN [None]
  - RETINAL DETACHMENT [None]
  - UPPER RESPIRATORY TRACT INFLAMMATION [None]
